FAERS Safety Report 10229787 (Version 1)
Quarter: 2014Q2

REPORT INFORMATION
  Report Type: Spontaneous
  Country: ZA (occurrence: ZA)
  Receive Date: 20140611
  Receipt Date: 20140611
  Transmission Date: 20141212
  Serious: Yes (Life-Threatening, Hospitalization)
  Sender: FDA-Public Use
  Company Number: ZA-BAYER-2014-080638

PATIENT
  Age: 60 Year
  Sex: Male

DRUGS (2)
  1. MOXIBAY 400 MG FILM-COATED TABLET [Suspect]
     Indication: CHRONIC OBSTRUCTIVE PULMONARY DISEASE
     Dosage: 400 MG, UNK
  2. MOXIBAY 400 MG FILM-COATED TABLET [Suspect]
     Indication: RESPIRATORY TRACT INFECTION

REACTIONS (4)
  - Anaphylactic reaction [Recovered/Resolved]
  - Nausea [Recovered/Resolved]
  - Dyspnoea [Recovered/Resolved]
  - Skin reaction [Recovered/Resolved]
